FAERS Safety Report 24910630 (Version 2)
Quarter: 2025Q3

REPORT INFORMATION
  Report Type: Spontaneous
  Country: KW (occurrence: KW)
  Receive Date: 20250131
  Receipt Date: 20250809
  Transmission Date: 20251020
  Serious: Yes (Hospitalization, Other)
  Sender: ALEXION PHARMACEUTICALS
  Company Number: KW-AstraZeneca-CH-00793486A

PATIENT
  Sex: Female

DRUGS (1)
  1. SAPHNELO [Suspect]
     Active Substance: ANIFROLUMAB-FNIA

REACTIONS (6)
  - Serositis [Unknown]
  - Vasculitis [Unknown]
  - Pericardial effusion [Unknown]
  - Mouth ulceration [Unknown]
  - Arthritis [Unknown]
  - Nasal ulcer [Unknown]
